FAERS Safety Report 13831114 (Version 1)
Quarter: 2017Q3

REPORT INFORMATION
  Report Type: Spontaneous
  Country: US (occurrence: US)
  Receive Date: 20170803
  Receipt Date: 20170803
  Transmission Date: 20171127
  Serious: No
  Sender: FDA-Public Use
  Company Number: GXBR2017US002139

PATIENT
  Sex: Female

DRUGS (2)
  1. LATISSE [Concomitant]
     Active Substance: BIMATOPROST
     Indication: PRODUCT USED FOR UNKNOWN INDICATION
     Route: 065
  2. BIMATOPROST. [Suspect]
     Active Substance: BIMATOPROST
     Indication: EYELASH THICKENING
     Dosage: 0.03 %, UNK
     Route: 065

REACTIONS (1)
  - Eyelid irritation [Unknown]
